FAERS Safety Report 5145111-0 (Version None)
Quarter: 2006Q4

REPORT INFORMATION
  Report Type: 
  Country: None (occurrence: None)
  Receive Date: 20061107
  Receipt Date: 20061102
  Transmission Date: 20070319
  Serious: Yes (Hospitalization)
  Sender: FDA-Public Use
  Company Number: US-BRISTOL-MYERS SQUIBB COMPANY-13564786

PATIENT
  Age: 63 Year
  Sex: Female

DRUGS (7)
  1. PACLITAXEL [Suspect]
     Indication: NON-SMALL CELL LUNG CANCER
     Route: 042
     Dates: start: 20041222
  2. CARBOPLATIN [Suspect]
     Indication: NON-SMALL CELL LUNG CANCER
     Dosage: DOSE = 5 AUC, Q3WEEK
     Route: 042
     Dates: start: 20041222
  3. TLK286 [Suspect]
     Indication: NON-SMALL CELL LUNG CANCER
     Route: 042
     Dates: start: 20041222
  4. ARANESP [Concomitant]
  5. LOVENOX [Concomitant]
  6. NEXIUM [Concomitant]
  7. SYNTHROID [Concomitant]

REACTIONS (2)
  - ANAEMIA [None]
  - DEHYDRATION [None]
